FAERS Safety Report 5623308-0 (Version None)
Quarter: 2008Q1

REPORT INFORMATION
  Report Type: 
  Country: None (occurrence: None)
  Receive Date: 20080212
  Receipt Date: 20080107
  Transmission Date: 20080703
  Serious: Yes (Other)
  Sender: FDA-Public Use
  Company Number: US-JNJFOC-20080102369

PATIENT
  Sex: Female

DRUGS (1)
  1. ULTRAM ER [Suspect]
     Indication: ARTHRITIS
     Route: 048

REACTIONS (2)
  - HEADACHE [None]
  - INTRACRANIAL PRESSURE INCREASED [None]
